FAERS Safety Report 15700956 (Version 2)
Quarter: 2018Q4

REPORT INFORMATION
  Report Type: Spontaneous
  Country: US (occurrence: US)
  Receive Date: 20181207
  Receipt Date: 20181212
  Transmission Date: 20190205
  Serious: No
  Sender: FDA-Public Use
  Company Number: US-PFIZER INC-2018501632

PATIENT
  Age: 76 Year
  Sex: Female
  Weight: 99.79 kg

DRUGS (1)
  1. GABAPENTIN. [Suspect]
     Active Substance: GABAPENTIN
     Indication: NEUROPATHY PERIPHERAL
     Dosage: 900 MG, 4X/DAY
     Route: 048
     Dates: end: 2018

REACTIONS (1)
  - Drug ineffective for unapproved indication [Unknown]
